FAERS Safety Report 7893070-X (Version None)
Quarter: 2011Q4

REPORT INFORMATION
  Report Type: 
  Country: None (occurrence: None)
  Receive Date: 20111104
  Receipt Date: 20111028
  Transmission Date: 20120403
  Serious: Yes (Other)
  Sender: FDA-Public Use
  Company Number: IT-PFIZER INC-2011265177

PATIENT
  Age: 13 Year
  Sex: Female

DRUGS (1)
  1. GENOTROPIN [Suspect]
     Indication: GROWTH RETARDATION
     Dosage: 1.8 MG, 1X/DAY
     Route: 058
     Dates: start: 20110308, end: 20111013

REACTIONS (2)
  - GLUCOSE TOLERANCE IMPAIRED [None]
  - HYPERINSULINAEMIA [None]
